FAERS Safety Report 9372489 (Version 1)
Quarter: 2013Q2

REPORT INFORMATION
  Report Type: Spontaneous
  Country: NL (occurrence: None)
  Receive Date: 20130625
  Receipt Date: 20130625
  Transmission Date: 20140414
  Serious: Yes (Other)
  Sender: FDA-Public Use
  Company Number: NL-022174

PATIENT
  Sex: Male

DRUGS (1)
  1. TIOGUANINE [Suspect]
     Indication: COLITIS ULCERATIVE
     Dates: start: 2007

REACTIONS (3)
  - Nephrolithiasis [None]
  - Renal disorder [None]
  - Off label use [None]
